FAERS Safety Report 4273728-4 (Version None)
Quarter: 2004Q1

REPORT INFORMATION
  Report Type: 
  Country: None (occurrence: None)
  Receive Date: 20040114
  Receipt Date: 20031015
  Transmission Date: 20041129
  Serious: Yes (Death)
  Sender: FDA-Public Use
  Company Number: 6361

PATIENT
  Age: 93 Year
  Sex: Female

DRUGS (10)
  1. AMOXICILLIN [Suspect]
     Indication: LOWER RESPIRATORY TRACT INFECTION
     Route: 048
     Dates: start: 20030201
  2. ERYTHROMYCIN [Suspect]
     Indication: LOWER RESPIRATORY TRACT INFECTION
     Route: 048
     Dates: end: 20030201
  3. LEVOFLOXACIN [Suspect]
     Indication: LOWER RESPIRATORY TRACT INFECTION
     Route: 048
     Dates: end: 20030201
  4. BENDROFLUAZIDE [Concomitant]
  5. ATENOLOL [Concomitant]
  6. CALCICHEW [Concomitant]
  7. ASPIRIN [Concomitant]
  8. ACETAMINOPHEN [Concomitant]
  9. ESTRADIOL [Concomitant]
  10. HYDROXYCOBALAMIN [Concomitant]

REACTIONS (2)
  - CLOSTRIDIUM COLITIS [None]
  - PNEUMONIA [None]
